FAERS Safety Report 5229067-8 (Version None)
Quarter: 2007Q1

REPORT INFORMATION
  Report Type: 
  Country: None (occurrence: None)
  Receive Date: 20061201
  Receipt Date: 20060811
  Transmission Date: 20070707
  Serious: No
  Sender: FDA-Public Use
  Company Number: US200608002665

PATIENT
  Age: 42 Year
  Sex: Female

DRUGS (3)
  1. CYMBALTA [Suspect]
     Indication: DEPRESSION
     Dosage: 60 MG
     Dates: start: 20060101
  2. INDERAL [Concomitant]
  3. SYNTHROID [Concomitant]

REACTIONS (4)
  - ABDOMINAL DISTENSION [None]
  - INSOMNIA [None]
  - SEXUAL DYSFUNCTION [None]
  - WEIGHT INCREASED [None]
